FAERS Safety Report 5385163-6 (Version None)
Quarter: 2007Q3

REPORT INFORMATION
  Report Type: 
  Country: None (occurrence: None)
  Receive Date: 20070712
  Receipt Date: 20070703
  Transmission Date: 20080115
  Serious: Yes (Other)
  Sender: FDA-Public Use
  Company Number: US-AVENTIS-200714940US

PATIENT

DRUGS (3)
  1. TAXOTERE [Suspect]
     Dosage: DOSE: 6 CYCLES
  2. ADRIAMYCIN PFS [Suspect]
     Dosage: DOSE: 6 CYCLES
  3. CYTOXAN [Suspect]
     Dosage: DOSE: 6 CYCLES

REACTIONS (1)
  - LUNG NEOPLASM [None]
